FAERS Safety Report 4625473-0 (Version None)
Quarter: 2005Q2

REPORT INFORMATION
  Report Type: 
  Country: None (occurrence: None)
  Receive Date: 20050401
  Receipt Date: 20050318
  Transmission Date: 20051028
  Serious: Yes (Death)
  Sender: FDA-Public Use
  Company Number: PHEH2005US03325

PATIENT
  Age: 56 Year
  Sex: Male
  Weight: 51 kg

DRUGS (6)
  1. CLOZARIL [Suspect]
     Indication: SCHIZOPHRENIA
     Dosage: 600 MG, QD
     Dates: start: 19960123
  2. UROXATRAL [Concomitant]
     Dosage: 10 MG, PRN
     Route: 048
  3. KLONOPIN [Concomitant]
     Dosage: 1 MG, BID
     Route: 048
  4. BUSPAR [Concomitant]
     Dosage: 15 MG, TID
     Route: 048
  5. COGENTIN [Concomitant]
     Dosage: 4 MG, BID
     Route: 048
  6. RISPERDAL [Concomitant]
     Dosage: 2 MG, BID
     Route: 048

REACTIONS (4)
  - ASPIRATION [None]
  - CARDIO-RESPIRATORY ARREST [None]
  - PNEUMONIA [None]
  - VOMITING [None]
